FAERS Safety Report 25575937 (Version 1)
Quarter: 2025Q3

REPORT INFORMATION
  Report Type: Spontaneous
  Country: US (occurrence: US)
  Receive Date: 20250718
  Receipt Date: 20250718
  Transmission Date: 20251020
  Serious: Yes (Other)
  Sender: SANOFI AVENTIS
  Company Number: US-DialogSolutions-SAAVPROD-PI801261-C1

PATIENT
  Age: 67 Year
  Sex: Male

DRUGS (4)
  1. ALEMTUZUMAB [Suspect]
     Active Substance: ALEMTUZUMAB
     Indication: Idiopathic pulmonary fibrosis
     Route: 041
  2. TACROLIMUS [Suspect]
     Active Substance: TACROLIMUS
     Indication: Idiopathic pulmonary fibrosis
  3. MYCOPHENOLIC ACID [Concomitant]
     Active Substance: MYCOPHENOLIC ACID
     Indication: Idiopathic pulmonary fibrosis
  4. PREDNISONE [Concomitant]
     Active Substance: PREDNISONE
     Indication: Idiopathic pulmonary fibrosis

REACTIONS (7)
  - Hidradenocarcinoma [Unknown]
  - Off label use [Unknown]
  - Skin lesion [Unknown]
  - Skin discolouration [Unknown]
  - Hilar lymphadenopathy [Unknown]
  - Bone lesion [Unknown]
  - Hepatic lesion [Unknown]

NARRATIVE: CASE EVENT DATE: 20230101
